FAERS Safety Report 13720643 (Version 1)
Quarter: 2017Q3

REPORT INFORMATION
  Report Type: Spontaneous
  Country: US (occurrence: US)
  Receive Date: 20170706
  Receipt Date: 20170706
  Transmission Date: 20171127
  Serious: No
  Sender: FDA-Public Use
  Company Number: US-TEVA-783377ACC

PATIENT
  Sex: Female

DRUGS (16)
  1. RIZATRIPTAN. [Concomitant]
     Active Substance: RIZATRIPTAN
  2. XANAX [Concomitant]
     Active Substance: ALPRAZOLAM
  3. CRANBERRY. [Concomitant]
     Active Substance: CRANBERRY
  4. CIPRO [Concomitant]
     Active Substance: CIPROFLOXACIN HYDROCHLORIDE
  5. MULTIVITAMIN [Concomitant]
     Active Substance: VITAMINS
  6. CALTRATE [Concomitant]
     Active Substance: CALCIUM CARBONATE
  7. NITROFURNTIN [Concomitant]
  8. COPAXONE [Suspect]
     Active Substance: GLATIRAMER ACETATE
     Indication: MULTIPLE SCLEROSIS
     Route: 058
     Dates: start: 20121027
  9. IBUPROFEN. [Concomitant]
     Active Substance: IBUPROFEN
  10. ESCITALOPRAM [Concomitant]
     Active Substance: ESCITALOPRAM OXALATE
  11. MELATONIN [Concomitant]
     Active Substance: MELATONIN
  12. LEVOTHYROXIN [Concomitant]
     Active Substance: LEVOTHYROXINE
  13. VITAMIN D3 [Concomitant]
     Active Substance: CHOLECALCIFEROL
  14. MIRALAX [Concomitant]
     Active Substance: POLYETHYLENE GLYCOL 3350
  15. GINKOBA [Concomitant]
     Active Substance: GINKGO
  16. GALZIN [Concomitant]
     Active Substance: ZINC ACETATE

REACTIONS (2)
  - Injection site reaction [Not Recovered/Not Resolved]
  - Mobility decreased [Not Recovered/Not Resolved]
